FAERS Safety Report 25134423 (Version 1)
Quarter: 2025Q1

REPORT INFORMATION
  Report Type: Spontaneous
  Country: US (occurrence: US)
  Receive Date: 20250328
  Receipt Date: 20250328
  Transmission Date: 20250409
  Serious: No
  Sender: BOEHRINGER INGELHEIM
  Company Number: US-Komodo Health-a23aa000006cE9lAAE

PATIENT
  Sex: Male

DRUGS (1)
  1. STIOLTO RESPIMAT [Suspect]
     Active Substance: OLODATEROL HYDROCHLORIDE\TIOTROPIUM BROMIDE MONOHYDRATE
     Indication: Product used for unknown indication

REACTIONS (2)
  - Concussion [Not Recovered/Not Resolved]
  - Memory impairment [Not Recovered/Not Resolved]

NARRATIVE: CASE EVENT DATE: 20180101
